FAERS Safety Report 25510614 (Version 1)
Quarter: 2025Q3

REPORT INFORMATION
  Report Type: Report from Study
  Country: US (occurrence: US)
  Receive Date: 20250703
  Receipt Date: 20250703
  Transmission Date: 20251021
  Serious: Yes (Other)
  Sender: ABBVIE
  Company Number: US-ABBVIE-6351892

PATIENT
  Age: 49 Year
  Sex: Female

DRUGS (2)
  1. CREON [Suspect]
     Active Substance: PANCRELIPASE AMYLASE\PANCRELIPASE LIPASE\PANCRELIPASE PROTEASE
     Indication: Product used for unknown indication
     Dosage: 2400UNITS FOR 3 DAYS
     Route: 048
     Dates: start: 20250220, end: 20250622
  2. CREON [Suspect]
     Active Substance: PANCRELIPASE AMYLASE\PANCRELIPASE LIPASE\PANCRELIPASE PROTEASE
     Indication: Product used for unknown indication
     Dates: start: 202506

REACTIONS (6)
  - Nephrectomy [Not Recovered/Not Resolved]
  - Headache [Not Recovered/Not Resolved]
  - Migraine [Unknown]
  - Abdominal pain [Unknown]
  - Pneumothorax [Unknown]
  - Procedural pain [Unknown]

NARRATIVE: CASE EVENT DATE: 20250101
